FAERS Safety Report 19871133 (Version 1)
Quarter: 2021Q3

REPORT INFORMATION
  Report Type: Report from Study
  Country: US (occurrence: US)
  Receive Date: 20210923
  Receipt Date: 20210923
  Transmission Date: 20211014
  Serious: Yes (Hospitalization)
  Sender: FDA-Public Use
  Company Number: US-B.I. PHARMACEUTICALS,INC./RIDGEFIELD-2021-BI-074208

PATIENT
  Age: 67 Year
  Sex: Female

DRUGS (2)
  1. OFEV [Suspect]
     Active Substance: NINTEDANIB
     Indication: IDIOPATHIC PULMONARY FIBROSIS
     Dosage: 100MG BY MOUTH TWICE DAILY
     Route: 048
     Dates: start: 20201218, end: 20210916
  2. OFEV [Suspect]
     Active Substance: NINTEDANIB
     Indication: INTERSTITIAL LUNG DISEASE

REACTIONS (9)
  - Nephrolithiasis [Recovering/Resolving]
  - Headache [Not Recovered/Not Resolved]
  - Haematuria [Recovered/Resolved]
  - Nausea [Not Recovered/Not Resolved]
  - Intentional dose omission [Recovered/Resolved]
  - Abdominal pain upper [Unknown]
  - Upper respiratory tract infection [Recovering/Resolving]
  - Dysuria [Recovering/Resolving]
  - Abdominal discomfort [Not Recovered/Not Resolved]

NARRATIVE: CASE EVENT DATE: 202106
